FAERS Safety Report 9896742 (Version 2)
Quarter: 2014Q1

REPORT INFORMATION
  Report Type: Spontaneous
  Country: US (occurrence: US)
  Receive Date: 20140213
  Receipt Date: 20140213
  Transmission Date: 20141002
  Serious: No
  Sender: FDA-Public Use
  Company Number: US-BRISTOL-MYERS SQUIBB COMPANY-19177088

PATIENT
  Age: 35 Year
  Sex: Female
  Weight: 126.98 kg

DRUGS (3)
  1. ABATACEPT SUBQ INJECTION 125MG/ML [Suspect]
     Indication: RHEUMATOID ARTHRITIS
     Dosage: 1DF:125MG/ML?LAST DOSE: 20AUG2013
     Route: 058
     Dates: start: 20130611, end: 20130820
  2. FOLIC ACID [Concomitant]
     Dosage: TABS
  3. OMEGA-3 [Concomitant]
     Dosage: CAPS

REACTIONS (4)
  - Pain in extremity [Unknown]
  - Back pain [Unknown]
  - Neck pain [Unknown]
  - Drug ineffective [Unknown]
